FAERS Safety Report 4441414-3 (Version None)
Quarter: 2004Q3

REPORT INFORMATION
  Report Type: 
  Country: None (occurrence: None)
  Receive Date: 20040728
  Receipt Date: 20040427
  Transmission Date: 20050211
  Serious: No
  Sender: FDA-Public Use
  Company Number: USA040466136

PATIENT
  Age: 12 Year

DRUGS (2)
  1. STRATTERA [Suspect]
  2. CONCERTA [Concomitant]

REACTIONS (4)
  - EXTRASYSTOLES [None]
  - HYPERTENSION [None]
  - HYPOTENSION [None]
  - VENTRICULAR ARRHYTHMIA [None]
